FAERS Safety Report 21440390 (Version 1)
Quarter: 2022Q4

REPORT INFORMATION
  Report Type: Spontaneous
  Country: US (occurrence: US)
  Receive Date: 20221011
  Receipt Date: 20221011
  Transmission Date: 20230113
  Serious: No
  Sender: FDA-Public Use
  Company Number: US-AMNEAL PHARMACEUTICALS-2022-AMRX-02694

PATIENT
  Age: 36 Year
  Sex: Male
  Weight: 104.76 kg

DRUGS (4)
  1. LIORESAL [Suspect]
     Active Substance: BACLOFEN
     Indication: Muscle spasticity
     Dosage: 295.11 ?G, \DAY
     Route: 037
     Dates: end: 20211217
  2. LIORESAL [Suspect]
     Active Substance: BACLOFEN
     Dosage: 295.11 ?G, \DAY
     Route: 037
     Dates: start: 20211217, end: 20211217
  3. LIORESAL [Suspect]
     Active Substance: BACLOFEN
     Dosage: 295.11 ?G, \DAY
     Dates: start: 20211217
  4. LIORESAL [Suspect]
     Active Substance: BACLOFEN
     Indication: Muscle spasticity
     Dosage: 295.11 ?G, \DAY
     Route: 037
     Dates: start: 20211217, end: 20211217

REACTIONS (3)
  - Asthenia [Unknown]
  - Product preparation error [Recovered/Resolved]
  - Device programming error [Recovered/Resolved]

NARRATIVE: CASE EVENT DATE: 20211217
